FAERS Safety Report 6039376-0 (Version None)
Quarter: 2009Q1

REPORT INFORMATION
  Report Type: 
  Country: None (occurrence: None)
  Receive Date: 20090114
  Receipt Date: 20081219
  Transmission Date: 20090719
  Serious: Yes (Death, Other)
  Sender: FDA-Public Use
  Company Number: 200826486GPV

PATIENT
  Age: 62 Year
  Sex: Male

DRUGS (5)
  1. FLUDARABINE PHOSPHATE [Suspect]
     Indication: ORGAN TRANSPLANT
  2. CAMPATH [Suspect]
     Indication: ORGAN TRANSPLANT
     Dosage: 10 MG QD
  3. MEPHALAN (MEPHALAN) [Concomitant]
  4. CYCLOSPORINE [Concomitant]
  5. PROPHYLAXIS [Concomitant]

REACTIONS (6)
  - ANAEMIA [None]
  - EPSTEIN-BARR VIRUS ASSOCIATED LYMPHOPROLIFERATIVE DISORDER [None]
  - HYPOXIA [None]
  - OBSTRUCTIVE AIRWAYS DISORDER [None]
  - OROPHARYNGEAL PAIN [None]
  - SINUS CONGESTION [None]
